FAERS Safety Report 22282724 (Version 1)
Quarter: 2023Q2

REPORT INFORMATION
  Report Type: Spontaneous
  Country: CA (occurrence: CA)
  Receive Date: 20230504
  Receipt Date: 20230504
  Transmission Date: 20230722
  Serious: Yes (Disabling)
  Sender: FDA-Public Use
  Company Number: CA-ORGANON-O2305CAN000182

PATIENT
  Age: 26 Year
  Sex: Male
  Weight: 70 kg

DRUGS (1)
  1. PROPECIA [Suspect]
     Active Substance: FINASTERIDE
     Indication: Alopecia
     Dosage: 1 MILLIGRAM, 1 EVERY 1 DAYS
     Route: 048

REACTIONS (7)
  - Anhedonia [Unknown]
  - Decreased appetite [Unknown]
  - Early satiety [Unknown]
  - Feeling abnormal [Unknown]
  - Gastritis [Unknown]
  - Insomnia [Unknown]
  - Peripheral coldness [Unknown]
